FAERS Safety Report 9044034 (Version 1)
Quarter: 2013Q1

REPORT INFORMATION
  Report Type: Spontaneous
  Country: US (occurrence: US)
  Receive Date: 20130130
  Receipt Date: 20130130
  Transmission Date: 20140127
  Serious: No
  Sender: FDA-Public Use
  Company Number: US-009507513-1301USA012725

PATIENT
  Age: 42 Year
  Sex: Male

DRUGS (2)
  1. PROPECIA [Suspect]
     Indication: ANDROGENETIC ALOPECIA
     Dosage: 1 MG, QD
     Route: 048
     Dates: start: 199607
  2. PROPECIA [Suspect]
     Dosage: 0.5 MG, QD
     Dates: end: 201209

REACTIONS (5)
  - Libido decreased [Recovering/Resolving]
  - Ejaculation disorder [Recovering/Resolving]
  - Erectile dysfunction [Recovering/Resolving]
  - Wrong technique in drug usage process [Unknown]
  - Drug prescribing error [Unknown]
